FAERS Safety Report 16167970 (Version 2)
Quarter: 2020Q3

REPORT INFORMATION
  Report Type: Spontaneous
  Country: PR (occurrence: US)
  Receive Date: 20190408
  Receipt Date: 20200807
  Transmission Date: 20201102
  Serious: Yes (Life-Threatening, Hospitalization, Other)
  Sender: FDA-Public Use
  Company Number: PR-JNJFOC-20190341361

PATIENT
  Age: 71 Year
  Sex: Female

DRUGS (2)
  1. XARELTO [Suspect]
     Active Substance: RIVAROXABAN
     Indication: ATRIAL FIBRILLATION
     Route: 048
  2. XARELTO [Suspect]
     Active Substance: RIVAROXABAN
     Indication: CEREBROVASCULAR ACCIDENT PROPHYLAXIS

REACTIONS (5)
  - Acute kidney injury [Recovering/Resolving]
  - Gastrointestinal haemorrhage [Recovering/Resolving]
  - Epistaxis [Unknown]
  - Haemorrhage [Unknown]
  - Shock haemorrhagic [Recovered/Resolved]

NARRATIVE: CASE EVENT DATE: 201803
